FAERS Safety Report 6544303-3 (Version None)
Quarter: 2010Q1

REPORT INFORMATION
  Report Type: 
  Country: None (occurrence: None)
  Receive Date: 20100120
  Receipt Date: 20100120
  Transmission Date: 20100710
  Serious: Yes (Other)
  Sender: FDA-Public Use
  Company Number: None

PATIENT
  Age: 31 Year
  Sex: Female
  Weight: 62.5964 kg

DRUGS (4)
  1. SINGULAIR [Suspect]
     Indication: RHINITIS
     Dosage: 1 TABLET ONCE A DAY PO
     Route: 048
     Dates: start: 20100114, end: 20100116
  2. SINGULAIR [Suspect]
     Indication: SINUSITIS
     Dosage: 1 TABLET ONCE A DAY PO
     Route: 048
     Dates: start: 20100114, end: 20100116
  3. NASONEX [Concomitant]
  4. LEVAQUIN [Concomitant]

REACTIONS (10)
  - AGITATION [None]
  - ANGER [None]
  - ANXIETY [None]
  - CRYING [None]
  - EMOTIONAL DISORDER [None]
  - GASTROINTESTINAL DISORDER [None]
  - INSOMNIA [None]
  - IRRITABILITY [None]
  - MAJOR DEPRESSION [None]
  - RESTLESSNESS [None]
